FAERS Safety Report 5378108-6 (Version None)
Quarter: 2007Q3

REPORT INFORMATION
  Report Type: 
  Country: None (occurrence: None)
  Receive Date: 20070702
  Receipt Date: 20070702
  Transmission Date: 20080115
  Serious: Yes (Death)
  Sender: FDA-Public Use
  Company Number: None

PATIENT
  Sex: Male
  Weight: 66.3 kg

DRUGS (1)
  1. CETUXIMAB [Suspect]
     Indication: TONGUE DISORDER
     Dosage: 250 MG/M2 QW
     Dates: start: 20070514

REACTIONS (1)
  - PNEUMONIA [None]
